FAERS Safety Report 8133303-8 (Version None)
Quarter: 2012Q1

REPORT INFORMATION
  Report Type: 
  Country: None (occurrence: None)
  Receive Date: 20120213
  Receipt Date: 20120202
  Transmission Date: 20120608
  Serious: Yes (Hospitalization)
  Sender: FDA-Public Use
  Company Number: ES-BRISTOL-MYERS SQUIBB COMPANY-16380040

PATIENT
  Age: 57 Year
  Sex: Male

DRUGS (6)
  1. ENALAPRIL MALEATE [Interacting]
     Indication: RENAL IMPAIRMENT
     Route: 048
     Dates: start: 20111103, end: 20111103
  2. IRBESARTAN [Interacting]
     Indication: HYPERTENSION
     Dosage: KARVEA 150MG
     Route: 048
     Dates: start: 20111103
  3. METFORMIN HCL [Suspect]
     Indication: TYPE 2 DIABETES MELLITUS
     Dosage: DIANBEN 850MG
     Route: 048
     Dates: end: 20111103
  4. ITRACONAZOLE [Concomitant]
     Indication: CANDIDIASIS
     Route: 048
     Dates: end: 20111103
  5. FUROSEMIDE [Concomitant]
     Indication: RENAL IMPAIRMENT
     Dosage: SEGURIL 40MG
     Route: 048
     Dates: end: 20111103
  6. ASPIRIN [Concomitant]
     Indication: PROPHYLAXIS
     Dosage: ADIRO 100MG
     Route: 048

REACTIONS (5)
  - HYPERKALAEMIA [None]
  - DRUG INTERACTION [None]
  - SYNCOPE [None]
  - HYPERLACTACIDAEMIA [None]
  - BRADYCARDIA [None]
